FAERS Safety Report 12562051 (Version 2)
Quarter: 2016Q3

REPORT INFORMATION
  Report Type: Report from Study
  Country: US (occurrence: US)
  Receive Date: 20160715
  Receipt Date: 20160725
  Transmission Date: 20161109
  Serious: Yes (Other)
  Sender: FDA-Public Use
  Company Number: US-009507513-1607USA006887

PATIENT

DRUGS (2)
  1. TEMODAR [Suspect]
     Active Substance: TEMOZOLOMIDE
     Indication: GLIOBLASTOMA
  2. BEVACIZUMAB [Suspect]
     Active Substance: BEVACIZUMAB
     Indication: GLIOBLASTOMA

REACTIONS (34)
  - Proteinuria [Unknown]
  - Cerebrovascular accident [Unknown]
  - Alanine aminotransferase increased [Unknown]
  - Arthralgia [Unknown]
  - White blood cell count decreased [Unknown]
  - Lymphocyte count decreased [Unknown]
  - Pollakiuria [Unknown]
  - Epistaxis [Unknown]
  - Blood bilirubin increased [Unknown]
  - Chronic kidney disease [Unknown]
  - Neutrophil count decreased [Unknown]
  - Radiculopathy [Unknown]
  - Hyperglycaemia [Unknown]
  - Platelet count decreased [Unknown]
  - Biopsy skin [Unknown]
  - Hypertension [Unknown]
  - Fracture [Unknown]
  - Hypernatraemia [Unknown]
  - Upper-airway cough syndrome [Unknown]
  - Anaemia [Unknown]
  - Dysgeusia [Unknown]
  - Nausea [Unknown]
  - Diarrhoea [Unknown]
  - Blood creatinine increased [Unknown]
  - Urticaria [Unknown]
  - Cough [Unknown]
  - Aspartate aminotransferase increased [Unknown]
  - Fatigue [Unknown]
  - Stomatitis [Unknown]
  - Vomiting [Unknown]
  - Nerve compression [Unknown]
  - Squamous cell carcinoma [Unknown]
  - Constipation [Unknown]
  - Back pain [Unknown]
